FAERS Safety Report 10934580 (Version 3)
Quarter: 2015Q1

REPORT INFORMATION
  Report Type: Spontaneous
  Country: ES (occurrence: ES)
  Receive Date: 20150320
  Receipt Date: 20150331
  Transmission Date: 20150721
  Serious: Yes (Hospitalization)
  Sender: FDA-Public Use
  Company Number: ES-INTERMUNE, INC.-201503IM011557

PATIENT
  Age: 66 Year
  Sex: Male
  Weight: 88 kg

DRUGS (6)
  1. NOVOMIX [Concomitant]
     Active Substance: INSULIN ASPART
  2. METFORMIN [Concomitant]
     Active Substance: METFORMIN HYDROCHLORIDE
  3. ESBRIET [Suspect]
     Active Substance: PIRFENIDONE
     Indication: IDIOPATHIC PULMONARY FIBROSIS
     Dosage: 801 MG
     Route: 048
     Dates: start: 20150305
  4. MICARDIS [Concomitant]
     Active Substance: TELMISARTAN
  5. LERCADIP [Concomitant]
     Active Substance: LERCANIDIPINE HYDROCHLORIDE
  6. ESBRIET [Suspect]
     Active Substance: PIRFENIDONE
     Dosage: 1602 MG
     Route: 048
     Dates: start: 20150317

REACTIONS (2)
  - Pyrexia [Recovered/Resolved]
  - Angioedema [Recovered/Resolved]
